FAERS Safety Report 7675369-5 (Version None)
Quarter: 2011Q3

REPORT INFORMATION
  Report Type: 
  Country: None (occurrence: None)
  Receive Date: 20110810
  Receipt Date: 20110729
  Transmission Date: 20111222
  Serious: Yes (Other)
  Sender: FDA-Public Use
  Company Number: US-GILEAD-2011-0042405

PATIENT
  Sex: Male

DRUGS (10)
  1. ADVAIR DISKUS 100/50 [Concomitant]
     Indication: ASTHMA
     Dates: start: 20090101
  2. PSYLIUM [Concomitant]
     Indication: MEDICAL DIET
     Dates: start: 20030101
  3. NEXIUM [Concomitant]
     Indication: GASTROOESOPHAGEAL REFLUX DISEASE
     Dates: start: 20020101
  4. XOLAIR [Concomitant]
     Indication: HYPERSENSITIVITY
     Dates: start: 20080101
  5. FISH OIL [Concomitant]
     Indication: MEDICAL DIET
     Dates: start: 20080101
  6. AZTREONAM [Suspect]
     Route: 048
     Dates: start: 20110701, end: 20110712
  7. AZTREONAM [Suspect]
     Indication: BRONCHIECTASIS
     Route: 048
     Dates: start: 20110727, end: 20110727
  8. MUCINEX [Concomitant]
     Indication: BRONCHIECTASIS
     Dates: start: 20060101
  9. LEXAPRO [Concomitant]
     Indication: DEPRESSION
     Dates: start: 20091101
  10. MULTI-VITAMIN [Concomitant]
     Indication: MEDICAL DIET
     Dates: start: 19780101

REACTIONS (1)
  - DRUG HYPERSENSITIVITY [None]
